FAERS Safety Report 17464076 (Version 2)
Quarter: 2020Q1

REPORT INFORMATION
  Report Type: Spontaneous
  Country: US (occurrence: US)
  Receive Date: 20200226
  Receipt Date: 20200227
  Transmission Date: 20200409
  Serious: No
  Sender: FDA-Public Use
  Company Number: US-PFIZER INC-2020085020

PATIENT
  Age: 76 Year
  Sex: Female

DRUGS (1)
  1. NALBUPHINE HYDROCHLORIDE. [Suspect]
     Active Substance: NALBUPHINE HYDROCHLORIDE
     Dosage: UNK
     Dates: start: 2016

REACTIONS (4)
  - Anxiety [Unknown]
  - Malaise [Unknown]
  - Restless legs syndrome [Unknown]
  - Nausea [Unknown]
